FAERS Safety Report 26208411 (Version 1)
Quarter: 2025Q4

REPORT INFORMATION
  Report Type: Spontaneous
  Country: US (occurrence: None)
  Receive Date: 20251227
  Receipt Date: 20251227
  Transmission Date: 20260118
  Serious: Yes (Disabling, Other)
  Sender: FDA-CTU
  Company Number: None

PATIENT
  Age: 64 Year
  Sex: Male
  Weight: 135 kg

DRUGS (2)
  1. ZEPBOUND [Suspect]
     Active Substance: TIRZEPATIDE
     Indication: Sleep apnoea syndrome
     Dosage: 4 INJECTION(S) ONCE WEEKLY SUBCUTANEOUS
     Route: 058
  2. ZEPBOUND [Suspect]
     Active Substance: TIRZEPATIDE
     Indication: Obesity

REACTIONS (3)
  - Nausea [None]
  - Vomiting projectile [None]
  - Diarrhoea [None]

NARRATIVE: CASE EVENT DATE: 20251201
